FAERS Safety Report 4607303-6 (Version None)
Quarter: 2005Q1

REPORT INFORMATION
  Report Type: 
  Country: None (occurrence: None)
  Receive Date: 20050309
  Receipt Date: 20050228
  Transmission Date: 20050727
  Serious: Yes (Hospitalization)
  Sender: FDA-Public Use
  Company Number: HQWYE737901MAR05

PATIENT
  Age: 18 Year
  Sex: Female

DRUGS (4)
  1. RAPAMUNE [Suspect]
     Indication: IMMUNOSUPPRESSANT DRUG THERAPY
     Dates: start: 20050119
  2. BACTRIM [Concomitant]
  3. RANITIDINE (RANITIDINE0 [Concomitant]
  4. DIANE - 35 (CYPROTERONE ACETATE/ETHINYLESTRADIOL) [Concomitant]

REACTIONS (6)
  - BLOOD CREATININE INCREASED [None]
  - DIALYSIS [None]
  - IMMUNOSUPPRESSANT DRUG LEVEL DECREASED [None]
  - KIDNEY TRANSPLANT REJECTION [None]
  - OLIGURIA [None]
  - PYREXIA [None]
